FAERS Safety Report 23852356 (Version 1)
Quarter: 2024Q2

REPORT INFORMATION
  Report Type: Spontaneous
  Country: KR (occurrence: KR)
  Receive Date: 20240514
  Receipt Date: 20240514
  Transmission Date: 20240716
  Serious: Yes (Other)
  Sender: FDA-Public Use
  Company Number: KR-002147023-NVSC2024KR101164

PATIENT
  Age: 54 Year
  Sex: Female

DRUGS (1)
  1. TEGRETOL XR [Suspect]
     Active Substance: CARBAMAZEPINE
     Indication: Product used for unknown indication
     Dosage: 200 MG, BID (1 TABLET)
     Route: 065
     Dates: start: 20231017, end: 20231124

REACTIONS (1)
  - Drug reaction with eosinophilia and systemic symptoms [Unknown]
